FAERS Safety Report 10005780 (Version 2)
Quarter: 2014Q1

REPORT INFORMATION
  Report Type: Spontaneous
  Country: IT (occurrence: IT)
  Receive Date: 20140313
  Receipt Date: 20140327
  Transmission Date: 20141002
  Serious: Yes (Death)
  Sender: FDA-Public Use
  Company Number: IT-RANBAXY-2014R1-78707

PATIENT
  Age: 45 Year
  Sex: Female

DRUGS (7)
  1. AMOXICILLIN + CLAVULANIC ACID [Suspect]
     Indication: BRONCHOPNEUMONIA
     Dosage: UNK
     Route: 065
  2. LEVOFLOXACIN [Suspect]
     Indication: BRONCHOPNEUMONIA
     Dosage: UNK
     Route: 065
  3. FUROSEMIDE [Suspect]
     Indication: RENAL IMPAIRMENT
     Dosage: UNK
     Route: 065
  4. PANTOPRAZOLE [Suspect]
     Indication: GASTRITIS PROPHYLAXIS
     Dosage: UNK
     Route: 065
  5. ITRACONAZOLE [Suspect]
     Indication: ORAL CANDIDIASIS
     Dosage: UNK
     Route: 065
  6. CANREONATE [Suspect]
     Indication: RENAL IMPAIRMENT
     Dosage: UNK
     Route: 065
  7. BETAMETHASONE [Concomitant]
     Indication: PRODUCT USED FOR UNKNOWN INDICATION
     Dosage: UNK
     Route: 065

REACTIONS (1)
  - Toxic epidermal necrolysis [Fatal]
